FAERS Safety Report 7842144-8 (Version None)
Quarter: 2011Q4

REPORT INFORMATION
  Report Type: 
  Country: None (occurrence: None)
  Receive Date: 20111025
  Receipt Date: 20111017
  Transmission Date: 20120403
  Serious: Yes (Hospitalization)
  Sender: FDA-Public Use
  Company Number: US-SANOFI-AVENTIS-2011SA069174

PATIENT
  Age: 59 Year
  Sex: Female

DRUGS (11)
  1. ALL OTHER THERAPEUTIC PRODUCTS [Concomitant]
  2. INSULIN DETEMIR [Suspect]
     Indication: TYPE 2 DIABETES MELLITUS
     Dosage: DOSE:16 UNIT(S)
     Route: 065
     Dates: end: 20101019
  3. PLATELETS [Concomitant]
  4. GLIMEPIRIDE [Suspect]
     Indication: TYPE 2 DIABETES MELLITUS
     Route: 065
     Dates: end: 20101111
  5. BLINDED THERAPY [Suspect]
     Indication: TYPE 2 DIABETES MELLITUS
     Route: 048
     Dates: start: 20100729
  6. ACE INHIBITOR NOS [Concomitant]
     Route: 065
  7. LASIX [Suspect]
     Route: 065
  8. DIURETICS [Concomitant]
  9. MECLIZINE [Suspect]
     Route: 065
     Dates: start: 20110204
  10. GLIMEPIRIDE [Suspect]
     Route: 065
     Dates: start: 20101112
  11. METFORMIN HCL [Suspect]
     Indication: TYPE 2 DIABETES MELLITUS
     Route: 065
     Dates: end: 20101111

REACTIONS (3)
  - DIZZINESS [None]
  - ORTHOSTATIC HYPOTENSION [None]
  - FALL [None]
